FAERS Safety Report 19182923 (Version 2)
Quarter: 2021Q2

REPORT INFORMATION
  Report Type: Report from Study
  Country: CA (occurrence: CA)
  Receive Date: 20210427
  Receipt Date: 20210608
  Transmission Date: 20210717
  Serious: Yes (Other)
  Sender: FDA-Public Use
  Company Number: CA-JNJFOC-20210446608

PATIENT
  Age: 14 Year
  Sex: Male
  Weight: 69 kg

DRUGS (1)
  1. REMICADE [Suspect]
     Active Substance: INFLIXIMAB
     Indication: CROHN^S DISEASE
     Dosage: ON 27?APR?2021, THE PATIENT RECEIVED 5TH INFUSION OF DOSE 400 MG
     Route: 042
     Dates: start: 20201210

REACTIONS (4)
  - Crohn^s disease [Recovered/Resolved]
  - Off label use [Unknown]
  - Product use issue [Unknown]
  - Weight increased [Recovered/Resolved]

NARRATIVE: CASE EVENT DATE: 20201210
